FAERS Safety Report 10649904 (Version 1)
Quarter: 2014Q4

REPORT INFORMATION
  Report Type: Spontaneous
  Country: US (occurrence: None)
  Receive Date: 20141205
  Receipt Date: 20141205
  Transmission Date: 20150529
  Serious: No
  Sender: FDA-Public Use
  Company Number: 163-POMAL-14085050

PATIENT
  Age: 57 Year
  Sex: Male
  Weight: 77.1 kg

DRUGS (9)
  1. POMALYST [Suspect]
     Active Substance: POMALIDOMIDE
     Indication: PLASMA CELL MYELOMA
     Dosage: 4 MG, 21 IN 21 D, PO
     Route: 048
     Dates: start: 20140314
  2. OSCAL D3 (UNKNOWN) [Concomitant]
  3. VALTREX (VALCICLOVIR HYDROCHLORIDE) (UNKNOWN) [Concomitant]
  4. VELCADE (BORTEZOMIB) (3.5 MILLIGRAM, UNKNOWN) [Concomitant]
  5. DEXAMETHASONE (DEXAMETHASONE) (4 MILLIGRAM, UNKNOWN) [Concomitant]
     Active Substance: DEXAMETHASONE
  6. ASPIRIN (ACETYLSALICYLIC ACID) (81 MILLIGRAM, UNKNOWN) [Concomitant]
  7. BACTRIM (SULFAMETHOXAZOLE, TRIMETHOPRIM) (UNKNOWN) [Concomitant]
  8. OXYCODONE HCL (OXYCODONE HYDROCHLORIDE) (UNKNOWN) [Concomitant]
  9. CLARITIN-D 24 HOUR (NARINE/01202601-) ( UNKNOWN) [Concomitant]

REACTIONS (1)
  - Folliculitis [None]
